FAERS Safety Report 17306915 (Version 2)
Quarter: 2020Q2

REPORT INFORMATION
  Report Type: Spontaneous
  Country: US (occurrence: US)
  Receive Date: 20200123
  Receipt Date: 20200429
  Transmission Date: 20200713
  Serious: Yes (Hospitalization, Other)
  Sender: FDA-Public Use
  Company Number: US-AMGEN-USASP2020008856

PATIENT
  Age: 19 Year
  Sex: Female

DRUGS (1)
  1. IVABRADINE [Suspect]
     Active Substance: IVABRADINE
     Indication: SINUS TACHYCARDIA
     Dosage: 7.5 MILLIGRAM, BID
     Route: 065

REACTIONS (7)
  - Intentional overdose [Unknown]
  - Vomiting [Unknown]
  - Off label use [Unknown]
  - Toxicity to various agents [Unknown]
  - Blood alcohol abnormal [Unknown]
  - Cardiogenic shock [Unknown]
  - Nausea [Unknown]
